FAERS Safety Report 8586474-3 (Version None)
Quarter: 2012Q3

REPORT INFORMATION
  Report Type: 
  Country: None (occurrence: None)
  Receive Date: 20120810
  Receipt Date: 20120803
  Transmission Date: 20120928
  Serious: Yes (Other)
  Sender: FDA-Public Use
  Company Number: US-VERTEX PHARMACEUTICALS INC.-AE-2012-005603

PATIENT
  Sex: Female
  Weight: 71.732 kg

DRUGS (7)
  1. PEGASYS [Concomitant]
     Route: 058
     Dates: start: 20120416
  2. BENAZEPRIL HYDROCHLORIDE [Concomitant]
     Indication: HYPERTENSION
     Route: 048
  3. INCIVEK [Suspect]
     Indication: HEPATITIS C
     Route: 048
     Dates: start: 20120319, end: 20120611
  4. NORVASC [Concomitant]
     Indication: HYPERTENSION
     Route: 048
  5. PEGASYS [Concomitant]
     Indication: HEPATITIS C
     Route: 058
     Dates: start: 20120319, end: 20120416
  6. RIBAVIRIN [Concomitant]
     Dates: start: 20120416
  7. RIBAVIRIN [Concomitant]
     Indication: HEPATITIS C
     Dates: start: 20120319, end: 20120416

REACTIONS (3)
  - WHITE BLOOD CELL COUNT DECREASED [None]
  - ANAEMIA [None]
  - PLATELET COUNT DECREASED [None]
